FAERS Safety Report 24331727 (Version 4)
Quarter: 2025Q1

REPORT INFORMATION
  Report Type: Report from Study
  Country: US (occurrence: US)
  Receive Date: 20240918
  Receipt Date: 20250121
  Transmission Date: 20250409
  Serious: Yes (Other)
  Sender: TAKEDA
  Company Number: US-TAKEDA-2024TUS088414

PATIENT
  Age: 25 Year
  Sex: Male

DRUGS (10)
  1. VEDOLIZUMAB [Suspect]
     Active Substance: VEDOLIZUMAB
     Indication: Colitis ulcerative
  2. VEDOLIZUMAB [Suspect]
     Active Substance: VEDOLIZUMAB
     Indication: Colitis ulcerative
     Dosage: 108 MILLIGRAM, Q2WEEKS
     Dates: start: 20241011
  3. VEDOLIZUMAB [Suspect]
     Active Substance: VEDOLIZUMAB
  4. DICYCLOMINE HYDROCHLORIDE [Concomitant]
     Active Substance: DICYCLOMINE HYDROCHLORIDE
  5. PREDNISONE [Concomitant]
     Active Substance: PREDNISONE
  6. MENAQUINONE 6 [Concomitant]
     Active Substance: MENAQUINONE 6
  7. VITAMIN D3 [Concomitant]
     Active Substance: CHOLECALCIFEROL
  8. SODIUM BUTYRATE [Concomitant]
     Active Substance: SODIUM BUTYRATE
  9. FISH OIL [Concomitant]
     Active Substance: FISH OIL
  10. NYSTATIN [Concomitant]
     Active Substance: NYSTATIN

REACTIONS (9)
  - Haematochezia [Not Recovered/Not Resolved]
  - Malaise [Unknown]
  - Diarrhoea [Not Recovered/Not Resolved]
  - Mucous stools [Not Recovered/Not Resolved]
  - Device leakage [Recovered/Resolved]
  - Injection site haemorrhage [Recovered/Resolved]
  - Feeling abnormal [Recovered/Resolved]
  - Injection site rash [Recovered/Resolved]
  - Abdominal pain [Not Recovered/Not Resolved]

NARRATIVE: CASE EVENT DATE: 20240901
